FAERS Safety Report 10012468 (Version 2)
Quarter: 2014Q2

REPORT INFORMATION
  Report Type: Report from Study
  Country: NL (occurrence: NL)
  Receive Date: 20140314
  Receipt Date: 20140612
  Transmission Date: 20141212
  Serious: Yes (Hospitalization, Other)
  Sender: FDA-Public Use
  Company Number: PHHY2014NL031004

PATIENT
  Age: 71 Year
  Sex: Male

DRUGS (4)
  1. ACLASTA [Suspect]
     Indication: OSTEOPOROSIS
     Dosage: 5 MG, ONCE EVERY 52 WEEKS
     Route: 042
     Dates: start: 20130221
  2. ACLASTA [Suspect]
     Dosage: 5 MG, ONCE EVERY 52 WEEKS
     Route: 042
     Dates: start: 20140311
  3. AVODART [Concomitant]
     Dosage: UNK UKN, UNK
  4. CALCIUM + VITAMIN D3 [Concomitant]
     Dosage: UNK UKN, UNK

REACTIONS (3)
  - Cerebral haemorrhage [Recovering/Resolving]
  - Cerebrovascular accident [Unknown]
  - White blood cell count increased [Unknown]
